FAERS Safety Report 8528784-1 (Version None)
Quarter: 2012Q3

REPORT INFORMATION
  Report Type: 
  Country: None (occurrence: None)
  Receive Date: 20120723
  Receipt Date: 20120717
  Transmission Date: 20120928
  Serious: Yes (Hospitalization, Other)
  Sender: FDA-Public Use
  Company Number: US-AMGEN-USASP2012044389

PATIENT
  Age: 65 Year
  Sex: Female

DRUGS (3)
  1. ENBREL [Suspect]
     Indication: RHEUMATOID ARTHRITIS
     Dosage: 25 MG, 2 TIMES/WK
     Dates: start: 19980101
  2. TREXALL [Concomitant]
     Dosage: 5 MG, UNK
     Dates: start: 20110101
  3. HUMIRA [Concomitant]

REACTIONS (14)
  - ABSCESS LIMB [None]
  - WOUND INFECTION [None]
  - NEPHROLITHIASIS [None]
  - SEPSIS [None]
  - RHEUMATOID ARTHRITIS [None]
  - OEDEMA PERIPHERAL [None]
  - KIDNEY INFECTION [None]
  - RENAL FAILURE ACUTE [None]
  - URINARY TRACT INFECTION [None]
  - MOBILITY DECREASED [None]
  - FATIGUE [None]
  - LIMB INJURY [None]
  - ROAD TRAFFIC ACCIDENT [None]
  - PAIN [None]
